FAERS Safety Report 6813772-3 (Version None)
Quarter: 2010Q3

REPORT INFORMATION
  Report Type: 
  Country: None (occurrence: None)
  Receive Date: 20100701
  Receipt Date: 20100701
  Transmission Date: 20110219
  Serious: Yes (Hospitalization, Other)
  Sender: FDA-Public Use
  Company Number: US-ABBOTT-10P-163-0650995-00

PATIENT
  Age: 66 Year
  Sex: Male

DRUGS (2)
  1. HUMIRA [Suspect]
     Indication: PSORIATIC ARTHROPATHY
  2. ACYCLOVIR [Concomitant]
     Indication: HERPES VIRUS INFECTION

REACTIONS (28)
  - ASTHENIA [None]
  - CARPAL TUNNEL SYNDROME [None]
  - CSF LYMPHOCYTE COUNT ABNORMAL [None]
  - CSF PROTEIN INCREASED [None]
  - DECREASED APPETITE [None]
  - DEHYDRATION [None]
  - DIABETES MELLITUS INADEQUATE CONTROL [None]
  - DIARRHOEA [None]
  - DIZZINESS [None]
  - GRIP STRENGTH DECREASED [None]
  - HEADACHE [None]
  - HERPES SIMPLEX [None]
  - HISTOPLASMOSIS [None]
  - HYPOTENSION [None]
  - IMMUNE SYSTEM DISORDER [None]
  - INFECTION SUSCEPTIBILITY INCREASED [None]
  - INSOMNIA [None]
  - MALAISE [None]
  - MENINGISM [None]
  - MENINGITIS [None]
  - MUSCULOSKELETAL STIFFNESS [None]
  - NAUSEA [None]
  - NECK PAIN [None]
  - NEUROPATHY PERIPHERAL [None]
  - OEDEMA PERIPHERAL [None]
  - PAIN IN EXTREMITY [None]
  - PSYCHIATRIC SYMPTOM [None]
  - PYREXIA [None]
